FAERS Safety Report 15227283 (Version 1)
Quarter: 2018Q3

REPORT INFORMATION
  Report Type: Spontaneous
  Country: BE (occurrence: BE)
  Receive Date: 20180801
  Receipt Date: 20180801
  Transmission Date: 20181010
  Serious: Yes (Other)
  Sender: FDA-Public Use
  Company Number: PHHY2016BE187099

PATIENT
  Sex: Female
  Weight: 88 kg

DRUGS (4)
  1. CARBOPLATIN. [Suspect]
     Active Substance: CARBOPLATIN
     Indication: OVARIAN CANCER
     Dosage: 1 OT, Q3W(480 AUC)
     Route: 042
     Dates: start: 20150402, end: 20150526
  2. PACLITAXEL. [Suspect]
     Active Substance: PACLITAXEL
     Dosage: 160 MG/M2, QW(LAST DOSE ON 08/DEC/2016)
     Route: 042
     Dates: end: 20161208
  3. PACLITAXEL. [Suspect]
     Active Substance: PACLITAXEL
     Indication: OVARIAN CANCER
     Dosage: 160 MG/M2, QW(LAST DOSE ON 08/DEC/2016)
     Route: 042
     Dates: start: 20150402, end: 20150526
  4. BEVACIZUMAB. [Suspect]
     Active Substance: BEVACIZUMAB
     Indication: OVARIAN CANCER
     Dosage: 1230 MG, Q3W
     Route: 042
     Dates: start: 20150424, end: 20150526

REACTIONS (17)
  - Leukopenia [Recovered/Resolved]
  - Arthralgia [Recovered/Resolved]
  - Urinary tract infection [Recovered/Resolved]
  - Hypoventilation [Recovered/Resolved]
  - Asthenia [Not Recovered/Not Resolved]
  - Femoral neck fracture [Not Recovered/Not Resolved]
  - Confusional state [Recovered/Resolved]
  - Hyponatraemia [Not Recovered/Not Resolved]
  - Insomnia [Recovered/Resolved]
  - Troponin T increased [Not Recovered/Not Resolved]
  - Myalgia [Recovered/Resolved]
  - N-terminal prohormone brain natriuretic peptide increased [Not Recovered/Not Resolved]
  - Depression [Not Recovered/Not Resolved]
  - Paraesthesia [Recovered/Resolved]
  - Anaemia [Recovered/Resolved]
  - Neutropenia [Recovered/Resolved]
  - Platelet count decreased [Recovered/Resolved]

NARRATIVE: CASE EVENT DATE: 20150424
